FAERS Safety Report 10011558 (Version 2)
Quarter: 2014Q2

REPORT INFORMATION
  Report Type: Report from Study
  Country: CN (occurrence: CN)
  Receive Date: 20140314
  Receipt Date: 20140506
  Transmission Date: 20141212
  Serious: Yes (Death, Disabling, Other)
  Sender: FDA-Public Use
  Company Number: CN-ASTELLAS-2014US002541

PATIENT
  Sex: Male

DRUGS (1)
  1. ERLOTINIB [Suspect]
     Indication: NON-SMALL CELL LUNG CANCER
     Route: 048
     Dates: start: 20130203

REACTIONS (4)
  - Malignant neoplasm progression [Fatal]
  - Deafness [Unknown]
  - Bone pain [Unknown]
  - Memory impairment [Unknown]
